FAERS Safety Report 15755789 (Version 1)
Quarter: 2018Q4

REPORT INFORMATION
  Report Type: Spontaneous
  Country: US (occurrence: US)
  Receive Date: 20181224
  Receipt Date: 20181224
  Transmission Date: 20190205
  Serious: Yes (Hospitalization, Other)
  Sender: FDA-Public Use
  Company Number: US-ASTELLAS-2018US053875

PATIENT
  Age: 28 Year
  Sex: Male

DRUGS (6)
  1. TACROLIMUS. [Suspect]
     Active Substance: TACROLIMUS
     Indication: STEM CELL TRANSPLANT
     Dosage: UNK UNK, UNKNOWN FREQ.
     Route: 065
  2. PREDNISONE. [Concomitant]
     Active Substance: PREDNISONE
     Indication: STEM CELL TRANSPLANT
     Dosage: UNK UNK, UNKNOWN FREQ.
     Route: 065
  3. FLUDARABINE [Concomitant]
     Active Substance: FLUDARABINE PHOSPHATE
     Indication: STEM CELL TRANSPLANT
     Route: 065
  4. ANTITHYMOCYTE IMMUNOGLOBULIN [Concomitant]
     Active Substance: THYMOCYTE IMMUNE GLOBULIN NOS
     Indication: STEM CELL TRANSPLANT
     Dosage: 0.5 MG/KG, UNKNOWN FREQ.
     Route: 065
  5. SORAFENIB [Suspect]
     Active Substance: SORAFENIB
     Indication: STEM CELL TRANSPLANT
     Route: 065
  6. BUSULFAN. [Concomitant]
     Active Substance: BUSULFAN
     Indication: STEM CELL TRANSPLANT
     Dosage: UNK UNK, UNKNOWN FREQ. (6000 MICRO MOL MIN EVERY 24 H)
     Route: 065

REACTIONS (13)
  - Ejection fraction decreased [Recovered/Resolved]
  - Intermittent claudication [Recovered/Resolved]
  - Graft versus host disease in skin [Recovered/Resolved]
  - Myocardial infarction [Recovered/Resolved]
  - Congestive cardiomyopathy [Recovered/Resolved]
  - Coronary artery disease [Recovered/Resolved]
  - Peripheral artery stenosis [Recovered/Resolved]
  - Septic shock [Recovered/Resolved]
  - Electrocardiogram Q waves [Recovered/Resolved]
  - Graft versus host disease in gastrointestinal tract [Recovered/Resolved]
  - Hypertension [Recovered/Resolved]
  - Coronary artery stenosis [Recovered/Resolved]
  - Arterial occlusive disease [Recovered/Resolved]
